FAERS Safety Report 5495798-8 (Version None)
Quarter: 2007Q4

REPORT INFORMATION
  Report Type: 
  Country: None (occurrence: None)
  Receive Date: 20071025
  Receipt Date: 20061025
  Transmission Date: 20080405
  Serious: No
  Sender: FDA-Public Use
  Company Number: A0624717A

PATIENT
  Sex: Female

DRUGS (2)
  1. ADVAIR DISKUS 100/50 [Suspect]
     Indication: DRUG USE FOR UNKNOWN INDICATION
     Route: 055
  2. OASIS MOISTURIZING MOUTH SPRAY [Suspect]
     Indication: DRY MOUTH
     Route: 048

REACTIONS (2)
  - DRUG INEFFECTIVE [None]
  - DRY MOUTH [None]
